FAERS Safety Report 8464066-4 (Version None)
Quarter: 2012Q2

REPORT INFORMATION
  Report Type: 
  Country: None (occurrence: None)
  Receive Date: 20120625
  Receipt Date: 20120618
  Transmission Date: 20120825
  Serious: Yes (Other)
  Sender: FDA-Public Use
  Company Number: US-JNJFOC-20120514800

PATIENT
  Sex: Female
  Weight: 62.6 kg

DRUGS (3)
  1. ZYRTEC [Suspect]
     Route: 048
  2. AN UNKNOWN MEDICATION [Concomitant]
     Indication: PRODUCT USED FOR UNKNOWN INDICATION
     Route: 065
  3. ZYRTEC [Suspect]
     Indication: SEASONAL ALLERGY
     Route: 048
     Dates: start: 20080601, end: 20120401

REACTIONS (14)
  - CHRONIC SINUSITIS [None]
  - EATING DISORDER [None]
  - EPISTAXIS [None]
  - DIZZINESS [None]
  - NAUSEA [None]
  - DISTURBANCE IN ATTENTION [None]
  - HAIR TEXTURE ABNORMAL [None]
  - INSOMNIA [None]
  - WEIGHT DECREASED [None]
  - WITHDRAWAL SYNDROME [None]
  - DRY EYE [None]
  - DRY SKIN [None]
  - ALOPECIA [None]
  - ACTIVITIES OF DAILY LIVING IMPAIRED [None]
